FAERS Safety Report 18737571 (Version 1)
Quarter: 2021Q1

REPORT INFORMATION
  Report Type: Spontaneous
  Country: US (occurrence: US)
  Receive Date: 20210113
  Receipt Date: 20210113
  Transmission Date: 20210419
  Serious: Yes (Death, Other)
  Sender: FDA-Public Use
  Company Number: US-EPIC PHARMA LLC-2020EPC00251

PATIENT
  Age: 41 Year
  Sex: Male
  Weight: 86.17 kg

DRUGS (5)
  1. OXYMORPHONE [Suspect]
     Active Substance: OXYMORPHONE
     Indication: PAIN
     Dosage: UNK
     Route: 048
  2. XANAX [Suspect]
     Active Substance: ALPRAZOLAM
     Dosage: UNK
  3. OXYMORPHONE [Suspect]
     Active Substance: OXYMORPHONE
     Dosage: LOWERED DOSE
  4. ZOLOFT [Concomitant]
     Active Substance: SERTRALINE HYDROCHLORIDE
  5. OXYMORPHONE [Suspect]
     Active Substance: OXYMORPHONE
     Dosage: INCREASED DOSE

REACTIONS (10)
  - Back pain [Not Recovered/Not Resolved]
  - Paranoia [Unknown]
  - Overdose [Fatal]
  - Withdrawal syndrome [Unknown]
  - Dependence [Not Recovered/Not Resolved]
  - Crying [Unknown]
  - Intentional product misuse [Unknown]
  - Emotional distress [Unknown]
  - Irritability [Unknown]
  - Obsessive thoughts [Unknown]

NARRATIVE: CASE EVENT DATE: 20180528
